FAERS Safety Report 25780815 (Version 1)
Quarter: 2025Q3

REPORT INFORMATION
  Report Type: Spontaneous
  Country: US (occurrence: US)
  Receive Date: 20250909
  Receipt Date: 20250909
  Transmission Date: 20251021
  Serious: No
  Sender: SAPTALIS PHARMACEUTICALS LLC
  Company Number: US-Saptalis Pharmaceuticals LLC-2184158

PATIENT
  Age: 75 Year
  Sex: Female

DRUGS (1)
  1. CLOBETASOL PROPIONATE [Suspect]
     Active Substance: CLOBETASOL PROPIONATE

REACTIONS (2)
  - Application site erythema [Unknown]
  - Skin burning sensation [Unknown]
